FAERS Safety Report 11766429 (Version 1)
Quarter: 2015Q4

REPORT INFORMATION
  Report Type: Spontaneous
  Country: JP (occurrence: JP)
  Receive Date: 20151123
  Receipt Date: 20151123
  Transmission Date: 20160304
  Serious: Yes (Hospitalization)
  Sender: FDA-Public Use
  Company Number: JP-UCBSA-2015023393

PATIENT
  Age: 57 Year
  Sex: Female

DRUGS (4)
  1. KEPPRA [Suspect]
     Active Substance: LEVETIRACETAM
     Dosage: 2000 MG, ONCE DAILY (QD)
     Route: 048
     Dates: start: 2015, end: 2015
  2. CARBAMAZEPINE. [Suspect]
     Active Substance: CARBAMAZEPINE
     Indication: PRODUCT USED FOR UNKNOWN INDICATION
     Dosage: DAILY DOSE 600 MG
     Route: 048
     Dates: end: 2015
  3. CARBAMAZEPINE. [Suspect]
     Active Substance: CARBAMAZEPINE
     Dosage: DAILY DOSE: 200 MG
     Route: 048
     Dates: start: 2015
  4. KEPPRA [Suspect]
     Active Substance: LEVETIRACETAM
     Indication: PRODUCT USED FOR UNKNOWN INDICATION
     Dosage: 1000 MG, ONCE DAILY (QD)
     Route: 048
     Dates: end: 2015

REACTIONS (4)
  - Insomnia [Recovered/Resolved]
  - Accident [Unknown]
  - Tinnitus [Recovered/Resolved]
  - Epilepsy [Unknown]

NARRATIVE: CASE EVENT DATE: 20150509
